FAERS Safety Report 4729904-7 (Version None)
Quarter: 2005Q3

REPORT INFORMATION
  Report Type: 
  Country: None (occurrence: None)
  Receive Date: 20050729
  Receipt Date: 20050729
  Transmission Date: 20060218
  Serious: Yes (Other)
  Sender: FDA-Public Use
  Company Number: None

PATIENT
  Age: 71 Year
  Sex: Female
  Weight: 61.2356 kg

DRUGS (1)
  1. ZYMAR [Suspect]
     Dosage: TOOK 3X EA DAY - 7 DAYS

REACTIONS (6)
  - ACTIVITIES OF DAILY LIVING IMPAIRED [None]
  - BLOOD PRESSURE SYSTOLIC INCREASED [None]
  - FEELING ABNORMAL [None]
  - MALAISE [None]
  - MOVEMENT DISORDER [None]
  - PARAESTHESIA [None]
